FAERS Safety Report 4882709-9 (Version None)
Quarter: 2006Q1

REPORT INFORMATION
  Report Type: 
  Country: None (occurrence: None)
  Receive Date: 20060113
  Receipt Date: 20060102
  Transmission Date: 20060701
  Serious: Yes (Other)
  Sender: FDA-Public Use
  Company Number: 2006000802

PATIENT
  Age: 34 Year
  Sex: Male
  Weight: 77.1115 kg

DRUGS (3)
  1. BENADRYL [Suspect]
     Indication: RASH PRURITIC
     Dosage: 2 KAPSEAL NIGHTLY, SOMETIMES 3RD DAILY, ORAL
     Route: 048
     Dates: start: 20051201, end: 20060101
  2. TIZANIDINE HCL [Concomitant]
  3. OXYCODONE HYDROCHLORIDE AND ACETAMINOPHEN [Concomitant]

REACTIONS (2)
  - CONDITION AGGRAVATED [None]
  - RASH PRURITIC [None]
